FAERS Safety Report 8268733-7 (Version None)
Quarter: 2012Q2

REPORT INFORMATION
  Report Type: 
  Country: None (occurrence: None)
  Receive Date: 20120409
  Receipt Date: 20120329
  Transmission Date: 20120825
  Serious: Yes (Hospitalization, Disabling, Other)
  Sender: FDA-Public Use
  Company Number: US-MERCK-1201USA02535

PATIENT
  Age: 60 Year
  Sex: Female

DRUGS (7)
  1. FOSAMAX [Suspect]
     Indication: ARTHRITIS
     Route: 048
     Dates: start: 20010321, end: 20110101
  2. FOSAMAX [Suspect]
     Indication: OSTEOPOROSIS
     Route: 048
     Dates: start: 20010321, end: 20110101
  3. MOBIC [Concomitant]
     Route: 048
  4. ESTROGENS (UNSPECIFIED) [Concomitant]
     Indication: OESTROGEN DEFICIENCY
     Route: 048
  5. FOSAMAX [Suspect]
     Route: 048
     Dates: start: 20080223, end: 20110101
  6. FOSAMAX [Suspect]
     Route: 048
     Dates: start: 20000415, end: 20010101
  7. FOSAMAX [Suspect]
     Route: 048
     Dates: start: 20000415, end: 20010101

REACTIONS (35)
  - RADICULITIS LUMBOSACRAL [None]
  - HYPERTENSION [None]
  - URINE ANALYSIS ABNORMAL [None]
  - TOOTH DISORDER [None]
  - FEMUR FRACTURE [None]
  - OSTEOARTHRITIS [None]
  - RIB FRACTURE [None]
  - GASTROOESOPHAGEAL REFLUX DISEASE [None]
  - NEOPLASM MALIGNANT [None]
  - HIP FRACTURE [None]
  - SPINAL OSTEOARTHRITIS [None]
  - VERTEBRAL FORAMINAL STENOSIS [None]
  - ARTHRALGIA [None]
  - PAIN [None]
  - HAEMORRHOIDS [None]
  - FOOT FRACTURE [None]
  - INTERVERTEBRAL DISC DEGENERATION [None]
  - BONE DENSITY DECREASED [None]
  - MACULAR DEGENERATION [None]
  - HEADACHE [None]
  - MITRAL VALVE PROLAPSE [None]
  - NEPHROLITHIASIS [None]
  - GROIN PAIN [None]
  - HYPERSENSITIVITY [None]
  - VITAMIN D DEFICIENCY [None]
  - SCIATICA [None]
  - ANAEMIA POSTOPERATIVE [None]
  - OFF LABEL USE [None]
  - INTERVERTEBRAL DISC PROTRUSION [None]
  - SNEEZING [None]
  - FALL [None]
  - NODAL OSTEOARTHRITIS [None]
  - STRESS FRACTURE [None]
  - CONSTIPATION [None]
  - HYPERLIPIDAEMIA [None]
